FAERS Safety Report 5189398-7 (Version None)
Quarter: 2006Q4

REPORT INFORMATION
  Report Type: 
  Country: None (occurrence: None)
  Receive Date: 20061218
  Receipt Date: 20061117
  Transmission Date: 20070319
  Serious: Yes (Death)
  Sender: FDA-Public Use
  Company Number: 6027491

PATIENT
  Age: 21 Year
  Sex: Male

DRUGS (4)
  1. ASPIRIN [Suspect]
     Indication: SUICIDE ATTEMPT
  2. CLONAZEPAM [Suspect]
     Indication: SUICIDE ATTEMPT
  3. ACETAMINOPHEN [Suspect]
     Indication: SUICIDE ATTEMPT
  4. ETHANOL(ETHANOL) [Suspect]

REACTIONS (6)
  - ACIDOSIS [None]
  - BLOOD PRESSURE DECREASED [None]
  - BRADYCARDIA [None]
  - CARDIAC ARREST [None]
  - CARDIAC DISORDER [None]
  - INTENTIONAL OVERDOSE [None]
